FAERS Safety Report 9959777 (Version 1)
Quarter: 2014Q1

REPORT INFORMATION
  Report Type: Report from Study
  Country: US (occurrence: US)
  Receive Date: 20140305
  Receipt Date: 20140305
  Transmission Date: 20141002
  Serious: No
  Sender: FDA-Public Use
  Company Number: US-ABBVIE-13P-163-1106041-00

PATIENT
  Age: 31 Year
  Sex: Female
  Weight: 68.1 kg

DRUGS (5)
  1. HUMIRA [Suspect]
     Indication: PSORIASIS
     Route: 058
  2. HUMIRA [Suspect]
     Dosage: TWO PENS FOR LOADING DOSE
     Route: 058
     Dates: start: 20130426, end: 20130426
  3. HUMIRA [Suspect]
     Route: 058
     Dates: start: 201305
  4. TACLONEX [Concomitant]
     Indication: PSORIASIS
  5. MINOCYCLINE [Concomitant]
     Indication: PSORIASIS

REACTIONS (6)
  - Burning sensation [Not Recovered/Not Resolved]
  - Injection site pain [Not Recovered/Not Resolved]
  - Injection site vesicles [Recovered/Resolved]
  - Psoriasis [Not Recovered/Not Resolved]
  - Pruritus [Not Recovered/Not Resolved]
  - Skin exfoliation [Not Recovered/Not Resolved]
